FAERS Safety Report 4470145-9 (Version None)
Quarter: 2004Q3

REPORT INFORMATION
  Report Type: 
  Country: None (occurrence: None)
  Receive Date: 20040910
  Receipt Date: 20040727
  Transmission Date: 20050211
  Serious: No
  Sender: FDA-Public Use
  Company Number: 2004226611US

PATIENT
  Sex: Female

DRUGS (2)
  1. BEXTRA [Suspect]
     Indication: TENDONITIS
     Dosage: 10 MG, QD
     Dates: start: 20040223, end: 20040401
  2. CELEXA [Concomitant]

REACTIONS (12)
  - ANXIETY [None]
  - BACK INJURY [None]
  - DIFFICULTY IN WALKING [None]
  - DISORIENTATION [None]
  - DIZZINESS [None]
  - DYSPHEMIA [None]
  - FALL [None]
  - JOINT INJURY [None]
  - NECK INJURY [None]
  - SCAR [None]
  - SPEECH DISORDER [None]
  - TREMOR [None]
